FAERS Safety Report 23654455 (Version 1)
Quarter: 2024Q1

REPORT INFORMATION
  Report Type: Spontaneous
  Country: US (occurrence: None)
  Receive Date: 20240319
  Receipt Date: 20240319
  Transmission Date: 20240409
  Serious: Yes (Disabling, Other)
  Sender: FDA-Public Use
  Company Number: None

PATIENT
  Age: 44 Year
  Sex: Male
  Weight: 72.12 kg

DRUGS (3)
  1. BOTOX COSMETIC [Suspect]
     Active Substance: ONABOTULINUMTOXINA
     Indication: Skin wrinkling
     Route: 030
     Dates: start: 20170913, end: 20190315
  2. MELATONIN [Concomitant]
     Active Substance: MELATONIN
  3. BENADRYL [Concomitant]
     Active Substance: DIPHENHYDRAMINE HYDROCHLORIDE

REACTIONS (39)
  - Guillain-Barre syndrome [None]
  - Lyme disease [None]
  - Fibromyalgia [None]
  - Multiple sclerosis [None]
  - Neuropathy peripheral [None]
  - Parkinson^s disease [None]
  - Botulism [None]
  - Myasthenia gravis [None]
  - Tremor [None]
  - Fatigue [None]
  - Anxiety [None]
  - Weight decreased [None]
  - Hypoaesthesia [None]
  - Genital paraesthesia [None]
  - Micropenis [None]
  - Asthenia [None]
  - Penis disorder [None]
  - Paraesthesia [None]
  - Asthenia [None]
  - Muscle atrophy [None]
  - Disturbance in attention [None]
  - Night sweats [None]
  - Panic reaction [None]
  - Middle insomnia [None]
  - Insomnia [None]
  - Dry mouth [None]
  - Skin exfoliation [None]
  - Skin exfoliation [None]
  - Alopecia [None]
  - Sexual dysfunction [None]
  - Testicular atrophy [None]
  - Skin discolouration [None]
  - Burning sensation [None]
  - Electric shock sensation [None]
  - Fatigue [None]
  - Alopecia [None]
  - Toxicity to various agents [None]
  - Quality of life decreased [None]
  - Hypotonia [None]

NARRATIVE: CASE EVENT DATE: 20190206
